FAERS Safety Report 7058071-2 (Version None)
Quarter: 2010Q4

REPORT INFORMATION
  Report Type: 
  Country: None (occurrence: None)
  Receive Date: 20101022
  Receipt Date: 20101012
  Transmission Date: 20110411
  Serious: Yes (Other)
  Sender: FDA-Public Use
  Company Number: US-JNJFOC-20101003811

PATIENT
  Age: 66 Year
  Sex: Female
  Weight: 77.11 kg

DRUGS (3)
  1. TYLENOL COLD HEAD CONGESTION SEVERE COOL BURST DAYTIME [Suspect]
     Indication: NASOPHARYNGITIS
     Route: 048
  2. PROTONIX [Concomitant]
     Indication: GASTROOESOPHAGEAL REFLUX DISEASE
  3. FOLIC ACID [Concomitant]
     Indication: LEUKAEMIA

REACTIONS (1)
  - CHOKING [None]
